FAERS Safety Report 13402646 (Version 2)
Quarter: 2017Q3

REPORT INFORMATION
  Report Type: Spontaneous
  Country: US (occurrence: US)
  Receive Date: 20170404
  Receipt Date: 20170804
  Transmission Date: 20171127
  Serious: Yes (Death, Hospitalization, Other)
  Sender: FDA-Public Use
  Company Number: US-ABBVIE-17P-163-1931297-00

PATIENT
  Sex: Male

DRUGS (3)
  1. DEPAKOTE [Suspect]
     Active Substance: DIVALPROEX SODIUM
     Indication: PRODUCT USED FOR UNKNOWN INDICATION
     Route: 065
  2. RISPERDAL [Suspect]
     Active Substance: RISPERIDONE
     Indication: PRODUCT USED FOR UNKNOWN INDICATION
     Dosage: TOOK FOR APPORXIMATELY  12 YEARS 5 MONTHS
     Route: 065
     Dates: start: 19980605
  3. DEPAKOTE [Suspect]
     Active Substance: DIVALPROEX SODIUM
     Route: 065
     Dates: start: 20121003

REACTIONS (20)
  - Pancreatic necrosis [Unknown]
  - Pancreatitis [Fatal]
  - Pollakiuria [Not Recovered/Not Resolved]
  - Drug hypersensitivity [Unknown]
  - Jaundice [Not Recovered/Not Resolved]
  - Abdominal distension [Not Recovered/Not Resolved]
  - Weight decreased [Not Recovered/Not Resolved]
  - Vomiting [Unknown]
  - Diabetes mellitus [Unknown]
  - Internal haemorrhage [Unknown]
  - Brain operation [Unknown]
  - Abdominal neoplasm [Unknown]
  - Thirst [Not Recovered/Not Resolved]
  - Alopecia [Not Recovered/Not Resolved]
  - Pancreatic mass [Unknown]
  - Nausea [Not Recovered/Not Resolved]
  - Swelling [Not Recovered/Not Resolved]
  - Decreased appetite [Not Recovered/Not Resolved]
  - Off label use [Unknown]
  - Hypersomnia [Unknown]

NARRATIVE: CASE EVENT DATE: 20010803
